FAERS Safety Report 6578109-6 (Version None)
Quarter: 2010Q1

REPORT INFORMATION
  Report Type: 
  Country: None (occurrence: None)
  Receive Date: 20100211
  Receipt Date: 20100203
  Transmission Date: 20100710
  Serious: Yes (Other)
  Sender: FDA-Public Use
  Company Number: US-JNJCH-2010003570

PATIENT
  Age: 19 Year
  Sex: Female
  Weight: 60.8 kg

DRUGS (4)
  1. BENADRYL [Suspect]
     Indication: SWELLING FACE
     Dosage: TEXT:1 OR 2 ONCE
     Route: 048
  2. PREDNISONE [Concomitant]
     Indication: DRUG USE FOR UNKNOWN INDICATION
     Dosage: TEXT:UNSPECIFIED
     Route: 065
  3. EPINEPHRINE [Concomitant]
     Indication: HYPERSENSITIVITY
     Dosage: TEXT:UNSPECIFIED
     Route: 065
  4. DRUG, UNSPECIFIED [Concomitant]
     Indication: RENAL DISORDER
     Dosage: TEXT:UNSPECIFIED
     Route: 065

REACTIONS (2)
  - OFF LABEL USE [None]
  - PHARYNGEAL OEDEMA [None]
